FAERS Safety Report 5495358-9 (Version None)
Quarter: 2007Q4

REPORT INFORMATION
  Report Type: 
  Country: None (occurrence: None)
  Receive Date: 20071024
  Receipt Date: 20071018
  Transmission Date: 20080405
  Serious: Yes (Other)
  Sender: FDA-Public Use
  Company Number: GB-MERCK-0708GBR00110

PATIENT
  Age: 51 Year
  Sex: Female
  Weight: 77 kg

DRUGS (4)
  1. SINGULAIR [Suspect]
     Indication: ASTHMA
     Route: 048
     Dates: start: 20041208, end: 20050104
  2. PHENYTOIN [Concomitant]
     Indication: EPILEPSY
     Route: 065
     Dates: start: 19840101
  3. VALPROATE SODIUM [Concomitant]
     Indication: EPILEPSY
     Route: 065
     Dates: start: 19840101
  4. ALBUTEROL [Concomitant]
     Indication: ASTHMA
     Dates: start: 19840101

REACTIONS (1)
  - EPILEPSY [None]
